FAERS Safety Report 4906287-0 (Version None)
Quarter: 2006Q1

REPORT INFORMATION
  Report Type: 
  Country: None (occurrence: None)
  Receive Date: 20060209
  Receipt Date: 20060203
  Transmission Date: 20060701
  Serious: Yes (Hospitalization)
  Sender: FDA-Public Use
  Company Number: GB-AVENTIS-200611144GDDC

PATIENT
  Age: 51 Year
  Sex: Female

DRUGS (18)
  1. HYDROCORTISONE [Suspect]
  2. CLOZAPINE [Suspect]
     Route: 048
     Dates: start: 20050526
  3. THYROXINE [Suspect]
  4. VALPROIC ACID [Suspect]
  5. RANITIDINE HCL [Suspect]
  6. CIPROFLOXACIN [Suspect]
  7. FLUCONAZOLE [Suspect]
  8. FENTANYL [Suspect]
  9. PARACETAMOL [Suspect]
  10. AMISULPRIDE [Concomitant]
  11. LITHIUM [Concomitant]
  12. LACTULOSE [Concomitant]
  13. CLEXANE [Concomitant]
  14. PROPOFOL [Concomitant]
  15. MIDAZOLAM [Concomitant]
  16. NORADRENALINE [Concomitant]
  17. POTASSIUM [Concomitant]
  18. INSULIN [Concomitant]

REACTIONS (1)
  - LOSS OF CONSCIOUSNESS [None]
